FAERS Safety Report 8465035-0 (Version None)
Quarter: 2012Q2

REPORT INFORMATION
  Report Type: 
  Country: None (occurrence: None)
  Receive Date: 20120618
  Receipt Date: 20120529
  Transmission Date: 20120825
  Serious: Yes (Hospitalization, Other)
  Sender: FDA-Public Use
  Company Number: 2012-2209

PATIENT
  Age: 7 Year
  Sex: Male
  Weight: 13 kg

DRUGS (3)
  1. INCRELEX [Suspect]
     Indication: PRIMARY INSULIN LIKE GROWTH FACTOR-1 DEFICIENCY
     Dosage: `10 UNITS (5 UNITS, 2 IN 1 D), UNKNWON
     Dates: start: 20100323
  2. ALBUTEROL (SALBUTEROL) [Concomitant]
  3. QVAR [Concomitant]

REACTIONS (3)
  - PNEUMONIA [None]
  - TONSILLAR HYPERTROPHY [None]
  - ADENOIDAL HYPERTROPHY [None]
